FAERS Safety Report 10049668 (Version 1)
Quarter: 2014Q1

REPORT INFORMATION
  Report Type: Spontaneous
  Country: US (occurrence: None)
  Receive Date: 20140331
  Receipt Date: 20140331
  Transmission Date: 20141002
  Serious: Yes (Other)
  Sender: FDA-Public Use
  Company Number: None

PATIENT
  Age: 31 Year
  Sex: Female
  Weight: 42.64 kg

DRUGS (1)
  1. EXTREME 5000 ACE DIET [Suspect]
     Indication: WEIGHT CONTROL
     Dosage: 1 PILL ONCE ORAL
     Route: 048
     Dates: start: 20140217, end: 20140217

REACTIONS (4)
  - Flushing [None]
  - Blood pressure increased [None]
  - Hyperhidrosis [None]
  - Feeling hot [None]
